FAERS Safety Report 21513443 (Version 4)
Quarter: 2023Q2

REPORT INFORMATION
  Report Type: Report from Study
  Country: BR (occurrence: BR)
  Receive Date: 20221027
  Receipt Date: 20230424
  Transmission Date: 20230721
  Serious: Yes (Other)
  Sender: FDA-Public Use
  Company Number: BR-NOVARTISPH-NVSC2021BR213244

PATIENT
  Age: 58 Year
  Sex: Female

DRUGS (8)
  1. XOLAIR [Suspect]
     Active Substance: OMALIZUMAB
     Indication: Urticaria
     Dosage: UNK UNK, QMO
     Route: 065
     Dates: start: 20210817
  2. XOLAIR [Suspect]
     Active Substance: OMALIZUMAB
     Dosage: UNK, EVERY 4 WEEKS
     Route: 065
  3. CAPTOPRIL [Suspect]
     Active Substance: CAPTOPRIL
     Indication: Hypertension
     Route: 065
  4. HYDROCHLOROTHIAZIDE [Suspect]
     Active Substance: HYDROCHLOROTHIAZIDE
     Indication: Hypertension
     Route: 065
  5. IBUPROFEN [Suspect]
     Active Substance: IBUPROFEN
     Indication: Product used for unknown indication
     Route: 065
  6. HISTAMINE [Suspect]
     Active Substance: HISTAMINE
     Indication: Hypersensitivity
     Dosage: UNK
     Route: 065
  7. HISTAMINE [Suspect]
     Active Substance: HISTAMINE
     Indication: Rash pruritic
  8. HISTAMINE [Suspect]
     Active Substance: HISTAMINE
     Indication: Blister

REACTIONS (29)
  - Poisoning [Unknown]
  - Glaucoma [Unknown]
  - Nail infection [Recovered/Resolved]
  - Tendonitis [Unknown]
  - Arthralgia [Unknown]
  - Joint swelling [Not Recovered/Not Resolved]
  - Inflammation [Unknown]
  - Limb injury [Unknown]
  - Back pain [Not Recovered/Not Resolved]
  - Fall [Unknown]
  - Oral pruritus [Unknown]
  - Weight increased [Unknown]
  - Exercise tolerance decreased [Not Recovered/Not Resolved]
  - Dysstasia [Not Recovered/Not Resolved]
  - Arthritis [Not Recovered/Not Resolved]
  - Intervertebral disc protrusion [Not Recovered/Not Resolved]
  - Glucose tolerance impaired [Unknown]
  - Hypertension [Unknown]
  - Abdominal pain upper [Unknown]
  - Somnolence [Recovered/Resolved]
  - Toxicity to various agents [Unknown]
  - Swelling [Unknown]
  - Mouth swelling [Unknown]
  - Swelling face [Unknown]
  - Blister [Unknown]
  - Rash pruritic [Unknown]
  - Urticaria [Unknown]
  - Drug hypersensitivity [Not Recovered/Not Resolved]
  - Pruritus [Unknown]

NARRATIVE: CASE EVENT DATE: 20211001
